FAERS Safety Report 18578178 (Version 1)
Quarter: 2020Q4

REPORT INFORMATION
  Report Type: Report from Study
  Country: US (occurrence: US)
  Receive Date: 20201204
  Receipt Date: 20201204
  Transmission Date: 20210114
  Serious: Yes (Hospitalization, Other)
  Sender: FDA-Public Use
  Company Number: US-ROCHE-2147439

PATIENT
  Age: 69 Year
  Sex: Male
  Weight: 94.5 kg

DRUGS (3)
  1. ATEZOLIZUMAB. [Suspect]
     Active Substance: ATEZOLIZUMAB
     Indication: GENITOURINARY TRACT NEOPLASM
     Route: 041
     Dates: start: 20180524, end: 20180524
  2. ATEZOLIZUMAB. [Suspect]
     Active Substance: ATEZOLIZUMAB
     Route: 042
     Dates: start: 20180612
  3. AMPICILLIN [Concomitant]
     Active Substance: AMPICILLIN

REACTIONS (6)
  - Fall [Unknown]
  - Nausea [Unknown]
  - Ileus [Unknown]
  - Dehydration [Unknown]
  - Urinary tract infection [Recovered/Resolved]
  - Vomiting [Unknown]

NARRATIVE: CASE EVENT DATE: 20180526
